FAERS Safety Report 7124660-X (Version None)
Quarter: 2010Q4

REPORT INFORMATION
  Report Type: 
  Country: None (occurrence: None)
  Receive Date: 20101129
  Receipt Date: 20101115
  Transmission Date: 20110411
  Serious: Yes (Other)
  Sender: FDA-Public Use
  Company Number: US-RANBAXY-2010US-39511

PATIENT

DRUGS (2)
  1. BISACODYL [Suspect]
     Indication: BOWEL PREPARATION
     Dosage: UNK, UNK
     Route: 065
  2. POLYETHYLENE GLYCOL [Suspect]
     Indication: BOWEL PREPARATION
     Route: 065

REACTIONS (1)
  - SMALL INTESTINAL OBSTRUCTION [None]
